FAERS Safety Report 15295231 (Version 1)
Quarter: 2018Q3

REPORT INFORMATION
  Report Type: Spontaneous
  Country: US (occurrence: US)
  Receive Date: 20180807
  Receipt Date: 20180807
  Transmission Date: 20181010
  Serious: Yes (Hospitalization)
  Sender: FDA-Public Use
  Company Number: None

PATIENT
  Age: 52 Year
  Sex: Female
  Weight: 95.3 kg

DRUGS (9)
  1. LASIX [Concomitant]
     Active Substance: FUROSEMIDE
  2. OCALIVA [Suspect]
     Active Substance: OBETICHOLIC ACID
  3. ALDACTONE [Concomitant]
     Active Substance: SPIRONOLACTONE
  4. RIFAXIMIN. [Concomitant]
     Active Substance: RIFAXIMIN
  5. OBETICHOLIC ACID [Concomitant]
     Active Substance: OBETICHOLIC ACID
  6. OMEPRAZOLE. [Concomitant]
     Active Substance: OMEPRAZOLE
  7. LACTULOSE. [Concomitant]
     Active Substance: LACTULOSE
  8. NADOLOL. [Concomitant]
     Active Substance: NADOLOL
  9. URSODIOL. [Concomitant]
     Active Substance: URSODIOL

REACTIONS (11)
  - Rhinorrhoea [None]
  - Pyrexia [None]
  - Asthma [None]
  - Cough [None]
  - Malaise [None]
  - Chills [None]
  - Thrombocytopenia [None]
  - Bone marrow failure [None]
  - Influenza [None]
  - Dyspnoea [None]
  - Pulmonary congestion [None]

NARRATIVE: CASE EVENT DATE: 20180326
